FAERS Safety Report 17456621 (Version 1)
Quarter: 2020Q1

REPORT INFORMATION
  Report Type: Report from Study
  Country: US (occurrence: US)
  Receive Date: 20200225
  Receipt Date: 20200225
  Transmission Date: 20200409
  Serious: Yes (Other)
  Sender: FDA-Public Use
  Company Number: US-BAYER-2020-025044

PATIENT
  Age: 69 Year
  Sex: Female
  Weight: 93.42 kg

DRUGS (6)
  1. ADEMPAS [Suspect]
     Active Substance: RIOCIGUAT
     Indication: PULMONARY ARTERIAL HYPERTENSION
     Dosage: 1.5 MG, TID
     Route: 048
     Dates: start: 20191125
  2. ADEMPAS [Suspect]
     Active Substance: RIOCIGUAT
     Indication: PULMONARY ARTERIAL HYPERTENSION
     Dosage: 2 MG, TID
     Route: 048
  3. ELIQUIS [Concomitant]
     Active Substance: APIXABAN
     Dosage: UNK
  4. ADEMPAS [Suspect]
     Active Substance: RIOCIGUAT
     Indication: PULMONARY ARTERIAL HYPERTENSION
     Dosage: UNK
     Dates: start: 20191125
  5. ADEMPAS [Suspect]
     Active Substance: RIOCIGUAT
     Indication: PULMONARY ARTERIAL HYPERTENSION
     Dosage: 1.5 MG, TID
     Route: 048
  6. DIFLUCAN [Suspect]
     Active Substance: FLUCONAZOLE
     Indication: CANDIDA INFECTION
     Dosage: UNK

REACTIONS (21)
  - Oedema [Recovering/Resolving]
  - Somnolence [None]
  - Weight decreased [None]
  - Loss of consciousness [Recovering/Resolving]
  - Dizziness [Recovering/Resolving]
  - Dizziness [None]
  - Product dose omission [None]
  - Dyspnoea exertional [None]
  - Glomerular filtration rate decreased [None]
  - Candida infection [None]
  - Diarrhoea [None]
  - Fatigue [None]
  - Confusional state [None]
  - Blood sodium decreased [None]
  - Blood pressure decreased [Recovering/Resolving]
  - Incorrect dose administered [None]
  - Hypotension [Not Recovered/Not Resolved]
  - Intentional product misuse [None]
  - Hypothyroidism [None]
  - Dyspnoea [None]
  - Blood chloride decreased [None]

NARRATIVE: CASE EVENT DATE: 20200205
